FAERS Safety Report 23517316 (Version 1)
Quarter: 2024Q1

REPORT INFORMATION
  Report Type: Spontaneous
  Country: US (occurrence: None)
  Receive Date: 20240212
  Receipt Date: 20240212
  Transmission Date: 20240409
  Serious: Yes (Other)
  Sender: FDA-Public Use
  Company Number: None

PATIENT
  Age: 63 Year
  Sex: Female
  Weight: 120.15 kg

DRUGS (2)
  1. VISIPAQUE [Suspect]
     Active Substance: IODIXANOL
     Indication: Haematuria
     Dosage: OTHER FREQUENCY : PER STUDY;?
     Route: 040
     Dates: start: 20240209, end: 20240209
  2. VISIPAQUE [Concomitant]
     Active Substance: IODIXANOL
     Dates: start: 20240209, end: 20240209

REACTIONS (2)
  - Cardio-respiratory arrest [None]
  - Contrast media reaction [None]

NARRATIVE: CASE EVENT DATE: 20240209
